FAERS Safety Report 18055842 (Version 1)
Quarter: 2020Q3

REPORT INFORMATION
  Report Type: Spontaneous
  Country: LV (occurrence: LV)
  Receive Date: 20200722
  Receipt Date: 20200722
  Transmission Date: 20201103
  Serious: Yes (Other)
  Sender: FDA-Public Use
  Company Number: LV-ANIPHARMA-2020-LV-000001

PATIENT
  Age: 78 Year
  Sex: Female

DRUGS (4)
  1. HJERTEMAGNYL [Concomitant]
     Route: 065
     Dates: start: 2018
  2. CANDESARTAN CILEXETIL AND HYDROCHLOROTHIAZIDE [Suspect]
     Active Substance: CANDESARTAN CILEXETIL\HYDROCHLOROTHIAZIDE
     Indication: HYPERTENSION
     Dosage: 16/12.5 MG, HALF TABLET ONCE A DAY
     Route: 048
     Dates: start: 20200519, end: 20200529
  3. SORTIS [Suspect]
     Active Substance: ATORVASTATIN
     Dosage: 20 MG QD
     Route: 048
     Dates: start: 20200519, end: 20200529
  4. VIGANTOL OIL [Concomitant]
     Route: 065
     Dates: start: 2020

REACTIONS (2)
  - Face oedema [Unknown]
  - Oedema peripheral [Recovered/Resolved]

NARRATIVE: CASE EVENT DATE: 20200529
